FAERS Safety Report 8343014-1 (Version None)
Quarter: 2012Q2

REPORT INFORMATION
  Report Type: 
  Country: None (occurrence: None)
  Receive Date: 20120508
  Receipt Date: 20120501
  Transmission Date: 20120825
  Serious: Yes (Other)
  Sender: FDA-Public Use
  Company Number: PHFR2012GB001800

PATIENT
  Sex: Male

DRUGS (10)
  1. CLOZARIL [Suspect]
     Dosage: 250 MG, DAILY
     Route: 048
  2. RISPERIDONE [Concomitant]
     Indication: PSYCHOTIC DISORDER
     Dosage: 2 MG, DAILY
     Route: 048
  3. BENDROFLUMETHIAZIDE [Concomitant]
     Indication: OEDEMA
     Dosage: 45 MG, DAILY
     Route: 048
  4. MEMANTINE HCL [Concomitant]
     Indication: DEMENTIA
     Dosage: 20 MG, DAILY
     Route: 048
  5. CLOZARIL [Suspect]
     Dosage: 300 MG, DAILY
     Dates: end: 20120501
  6. ADCAL-D3 [Concomitant]
     Indication: VITAMIN D DEFICIENCY
     Route: 048
  7. ZOPICLONE [Concomitant]
     Indication: SLEEP DISORDER
     Dosage: 3.75 MG, DAILY
     Route: 048
  8. LORAZEPAM [Concomitant]
     Indication: AGITATION
     Dosage: 1 MG, DAILY
     Route: 048
  9. CLOZARIL [Suspect]
     Indication: SCHIZOPHRENIA
     Route: 048
     Dates: start: 20091021
  10. ASPIRIN [Concomitant]
     Indication: CEREBROVASCULAR ACCIDENT
     Dosage: 75 MG, DAILY
     Route: 048

REACTIONS (3)
  - ANTIPSYCHOTIC DRUG LEVEL ABOVE THERAPEUTIC [None]
  - URINARY TRACT INFECTION [None]
  - DEMENTIA [None]
